FAERS Safety Report 16038522 (Version 3)
Quarter: 2019Q2

REPORT INFORMATION
  Report Type: Spontaneous
  Country: US (occurrence: US)
  Receive Date: 20190305
  Receipt Date: 20190429
  Transmission Date: 20190711
  Serious: Yes (Hospitalization)
  Sender: FDA-Public Use
  Company Number: US-CELGENEUS-USA-20190300385

PATIENT
  Age: 64 Year
  Sex: Male

DRUGS (14)
  1. TAMIFLU [Concomitant]
     Active Substance: OSELTAMIVIR PHOSPHATE
     Indication: INFLUENZA
     Dosage: 60 MILLIGRAM
     Route: 048
     Dates: start: 20190204, end: 20190214
  2. CEFTRIAXONE. [Concomitant]
     Active Substance: CEFTRIAXONE
     Indication: PNEUMONIA
     Dosage: 2 GRAM
     Route: 041
     Dates: start: 20190207, end: 20190212
  3. BIPAP [Concomitant]
     Active Substance: DEVICE
     Indication: RESPIRATORY FAILURE
     Route: 065
  4. VANCOMYCIN [Concomitant]
     Active Substance: VANCOMYCIN
     Indication: PRODUCT USED FOR UNKNOWN INDICATION
     Dosage: 50 MILLIGRAM
     Route: 041
     Dates: start: 20190204
  5. ZOSYN [Concomitant]
     Active Substance: PIPERACILLIN SODIUM\TAZOBACTAM SODIUM
     Indication: SEPSIS
     Dosage: 9 GRAM
     Route: 041
     Dates: start: 20190204, end: 20190207
  6. DIGOXIN. [Concomitant]
     Active Substance: DIGOXIN
     Indication: CARDIAC FAILURE CONGESTIVE
  7. REVLIMID [Suspect]
     Active Substance: LENALIDOMIDE
     Indication: PLASMA CELL MYELOMA
     Dosage: 25 MILLIGRAM
     Route: 048
     Dates: start: 201805
  8. BLOOD [Concomitant]
     Active Substance: WHOLE BLOOD
     Indication: ANAEMIA
     Route: 041
  9. DIGOXIN. [Concomitant]
     Active Substance: DIGOXIN
     Indication: CORONARY ARTERY DISEASE
     Dosage: 62.5 MICROGRAM
     Route: 048
  10. REVLIMID [Suspect]
     Active Substance: LENALIDOMIDE
     Dosage: 25 MILLIGRAM
     Route: 048
     Dates: start: 20190108, end: 20190204
  11. DEXAMETHASONE. [Concomitant]
     Active Substance: DEXAMETHASONE
     Indication: PRODUCT USED FOR UNKNOWN INDICATION
     Route: 065
  12. LASIX [Concomitant]
     Active Substance: FUROSEMIDE
     Indication: PLEURAL EFFUSION
     Dosage: 40 MILLIGRAM
     Route: 048
  13. LEVOPHED [Concomitant]
     Active Substance: NOREPINEPHRINE BITARTRATE
     Indication: HYPOTENSION
     Dosage: 10 MICROGRAM
     Route: 041
     Dates: start: 20190205, end: 20190207
  14. AZITHROMYCIN ANHYDROUS. [Concomitant]
     Active Substance: AZITHROMYCIN ANHYDROUS
     Indication: SEPSIS
     Dosage: 500 MILLIGRAM
     Route: 048
     Dates: start: 20190204, end: 20190206

REACTIONS (3)
  - Escherichia sepsis [Recovered/Resolved]
  - Influenza [Recovered/Resolved]
  - Pneumonia [Recovered/Resolved]

NARRATIVE: CASE EVENT DATE: 20190204
